FAERS Safety Report 25127753 (Version 1)
Quarter: 2025Q1

REPORT INFORMATION
  Report Type: Report from Study
  Country: DE (occurrence: DE)
  Receive Date: 20250327
  Receipt Date: 20250327
  Transmission Date: 20250408
  Serious: Yes (Other)
  Sender: TAKEDA
  Company Number: DE-TAKEDA-2025TUS029101

PATIENT
  Age: 37 Year
  Sex: Female

DRUGS (1)
  1. HUMAN IMMUNOGLOBULIN G [Suspect]
     Active Substance: HUMAN IMMUNOGLOBULIN G
     Indication: Primary immunodeficiency syndrome
     Dosage: UNK, 1/WEEK
     Dates: start: 2021

REACTIONS (7)
  - Nephrolithiasis [Recovered/Resolved]
  - Injection site mass [Not Recovered/Not Resolved]
  - Protein urine present [Not Recovered/Not Resolved]
  - Cystitis [Not Recovered/Not Resolved]
  - Bronchitis chronic [Recovered/Resolved]
  - Device leakage [Not Recovered/Not Resolved]
  - Multiple use of single-use product [Unknown]

NARRATIVE: CASE EVENT DATE: 20210101
